FAERS Safety Report 5316203-8 (Version None)
Quarter: 2007Q2

REPORT INFORMATION
  Report Type: 
  Country: None (occurrence: None)
  Receive Date: 20070503
  Receipt Date: 20070430
  Transmission Date: 20071010
  Serious: Yes (Other)
  Sender: FDA-Public Use
  Company Number: US-ROXANE LABORATORIES, INC-2007-DE-02648GD

PATIENT
  Age: 69 Year
  Sex: Female

DRUGS (4)
  1. PREDNISONE 50MG TAB [Suspect]
     Indication: ASTHMA
     Route: 048
  2. FLUTICASONE/SALMETEROL [Suspect]
     Indication: ASTHMA
     Route: 055
  3. IPRATROPIUM BROMIDE [Concomitant]
     Indication: ASTHMA
  4. ALBUTEROL [Concomitant]
     Indication: ASTHMA

REACTIONS (5)
  - DRUG HYPERSENSITIVITY [None]
  - FLUSHING [None]
  - HYPOTENSION [None]
  - RESPIRATORY DISTRESS [None]
  - URTICARIA [None]
